FAERS Safety Report 23560003 (Version 1)
Quarter: 2024Q1

REPORT INFORMATION
  Report Type: Spontaneous
  Country: US (occurrence: US)
  Receive Date: 20240223
  Receipt Date: 20240223
  Transmission Date: 20240410
  Serious: Yes (Death, Other)
  Sender: FDA-Public Use
  Company Number: US-JNJFOC-20240251612

PATIENT

DRUGS (1)
  1. CILTACABTAGENE AUTOLEUCEL [Suspect]
     Active Substance: CILTACABTAGENE AUTOLEUCEL
     Indication: Plasma cell myeloma refractory
     Route: 065

REACTIONS (12)
  - Infection [Fatal]
  - Haematological infection [Unknown]
  - Clostridium difficile colitis [Unknown]
  - Blood immunoglobulin G decreased [Unknown]
  - Immunosuppression [Unknown]
  - Pyelonephritis fungal [Unknown]
  - Urinary tract infection [Unknown]
  - Soft tissue infection [Unknown]
  - Rhinovirus infection [Unknown]
  - Metapneumovirus infection [Unknown]
  - COVID-19 [Unknown]
  - Skin infection [Unknown]
